FAERS Safety Report 18942009 (Version 1)
Quarter: 2021Q1

REPORT INFORMATION
  Report Type: Spontaneous
  Country: None (occurrence: US)
  Receive Date: 20210225
  Receipt Date: 20210225
  Transmission Date: 20210420
  Serious: Yes (Death, Hospitalization, Other)
  Sender: FDA-Public Use
  Company Number: US-ELI_LILLY_AND_COMPANY-US202102009866

PATIENT
  Age: 55 Year
  Sex: Male

DRUGS (4)
  1. ATOMOXETINE HYDROCHLORIDE. [Suspect]
     Active Substance: ATOMOXETINE HYDROCHLORIDE
     Indication: PRODUCT USED FOR UNKNOWN INDICATION
     Dosage: 40 MG, BID
     Route: 065
  2. PAXIL [Interacting]
     Active Substance: PAROXETINE HYDROCHLORIDE
     Indication: PRODUCT USED FOR UNKNOWN INDICATION
     Dosage: 25 MG, TID
     Route: 065
  3. WELLBUTRIN [Concomitant]
     Active Substance: BUPROPION HYDROCHLORIDE
     Indication: PRODUCT USED FOR UNKNOWN INDICATION
     Dosage: 200 MG, UNKNOWN
     Route: 065
  4. OLANZAPINE. [Suspect]
     Active Substance: OLANZAPINE
     Indication: DELIRIUM
     Dosage: 7.5 MG, UNKNOWN
     Route: 065

REACTIONS (11)
  - Drug interaction [Unknown]
  - Serotonin syndrome [Unknown]
  - Encephalopathy [Unknown]
  - Neuroleptic malignant syndrome [Unknown]
  - Agitation [Unknown]
  - Suicide attempt [Unknown]
  - Pulmonary embolism [Fatal]
  - Waxy flexibility [Unknown]
  - Electrocardiogram QT prolonged [Unknown]
  - Pneumonia aspiration [Unknown]
  - Disorientation [Unknown]
